FAERS Safety Report 6236135-0 (Version None)
Quarter: 2009Q2

REPORT INFORMATION
  Report Type: 
  Country: None (occurrence: None)
  Receive Date: 20090619
  Receipt Date: 20090608
  Transmission Date: 20091009
  Serious: Yes (Other)
  Sender: FDA-Public Use
  Company Number: US-PFIZER INC-2009211171

PATIENT
  Sex: Female
  Weight: 48.526 kg

DRUGS (2)
  1. AZULFIDINE [Suspect]
     Indication: COLITIS ULCERATIVE
     Dosage: UNK
  2. SULFASALAZINE [Suspect]
     Indication: COLITIS ULCERATIVE
     Dosage: 4000MG/DAY
     Dates: end: 20090501

REACTIONS (6)
  - DEHYDRATION [None]
  - DIARRHOEA [None]
  - FOOD ALLERGY [None]
  - MALAISE [None]
  - NEOPLASM MALIGNANT [None]
  - WEIGHT DECREASED [None]
